FAERS Safety Report 20129669 (Version 1)
Quarter: 2021Q4

REPORT INFORMATION
  Report Type: Spontaneous
  Country: US (occurrence: None)
  Receive Date: 20211129
  Receipt Date: 20211129
  Transmission Date: 20220303
  Serious: Yes (Other)
  Sender: FDA-Public Use
  Company Number: None

PATIENT
  Age: 67 Year
  Sex: Female

DRUGS (1)
  1. WEGOVY [Suspect]
     Active Substance: SEMAGLUTIDE
     Indication: Obesity
     Dosage: OTHER QUANTITY : 1 INJECTION(S);?OTHER FREQUENCY : 1 PEN/WEEK;?
     Route: 058
     Dates: start: 20211011, end: 20211124

REACTIONS (5)
  - Nausea [None]
  - Facial pain [None]
  - Hypoaesthesia [None]
  - Eructation [None]
  - Flatulence [None]

NARRATIVE: CASE EVENT DATE: 20211110
